FAERS Safety Report 6052310-2 (Version None)
Quarter: 2009Q1

REPORT INFORMATION
  Report Type: 
  Country: None (occurrence: None)
  Receive Date: 20090126
  Receipt Date: 20090107
  Transmission Date: 20090719
  Serious: Yes (Hospitalization)
  Sender: FDA-Public Use
  Company Number: ES-GENENTECH-274941

PATIENT
  Sex: Female

DRUGS (4)
  1. TRASTUZUMAB [Suspect]
     Indication: BREAST CANCER METASTATIC
     Dosage: 120 MG, 1/WEEK
     Route: 042
     Dates: start: 20080530
  2. DOXORUBICIN HCL [Suspect]
     Indication: BREAST CANCER METASTATIC
     Dosage: 61 MG, 3/WEEK
     Route: 042
     Dates: start: 20080530, end: 20081120
  3. PACLITAXEL [Suspect]
     Indication: BREAST CANCER METASTATIC
     Dosage: 122 MG, 1/WEEK
     Route: 042
     Dates: start: 20080530
  4. PIPERACILLIN AND TAZOBACTAM [Concomitant]
     Indication: DRUG USE FOR UNKNOWN INDICATION
     Dosage: 122 MG, 1/WEEK
     Route: 042
     Dates: start: 20080530

REACTIONS (2)
  - HYPERTENSIVE CRISIS [None]
  - PYREXIA [None]
